FAERS Safety Report 16781577 (Version 1)
Quarter: 2019Q3

REPORT INFORMATION
  Report Type: Report from Study
  Country: GB (occurrence: GB)
  Receive Date: 20190906
  Receipt Date: 20190906
  Transmission Date: 20191005
  Serious: Yes (Other)
  Sender: FDA-Public Use
  Company Number: GB-JNJFOC-20190900501

PATIENT
  Age: 74 Year
  Sex: Male
  Weight: 88.7 kg

DRUGS (5)
  1. STELARA [Suspect]
     Active Substance: USTEKINUMAB
     Indication: PSORIASIS
     Route: 058
     Dates: start: 20100528, end: 20190619
  2. ISONIAZID. [Concomitant]
     Active Substance: ISONIAZID
     Dates: start: 20160430
  3. PYRIDOXINE [Concomitant]
     Active Substance: PYRIDOXINE
     Dates: start: 20160430
  4. TAMSULOSIN HYDROCHLORIDE. [Concomitant]
     Active Substance: TAMSULOSIN HYDROCHLORIDE
     Dates: start: 20120101
  5. MEBEVERINE [Concomitant]
     Active Substance: MEBEVERINE
     Dates: start: 20120101

REACTIONS (1)
  - Prostate cancer [Unknown]

NARRATIVE: CASE EVENT DATE: 20190701
